FAERS Safety Report 5890445-5 (Version None)
Quarter: 2008Q3

REPORT INFORMATION
  Report Type: 
  Country: None (occurrence: None)
  Receive Date: 20080922
  Receipt Date: 20080910
  Transmission Date: 20090109
  Serious: Yes (Life-Threatening, Hospitalization, Other)
  Sender: FDA-Public Use
  Company Number: GB-RANBAXY-2008RR-15698

PATIENT
  Age: 69 Year
  Sex: Male

DRUGS (18)
  1. CLARITHROMYCIN [Suspect]
     Indication: MYCOBACTERIUM AVIUM COMPLEX INFECTION
     Dosage: UNK
     Route: 065
     Dates: start: 20030501
  2. CLOPIDOGREL [Suspect]
     Indication: PROPHYLAXIS
     Dosage: 75 MG, QD
     Route: 048
  3. CLOPIDOGREL [Suspect]
     Indication: PREOPERATIVE CARE
     Dosage: 600 MG, UNK
     Route: 042
  4. CLOPIDOGREL [Suspect]
     Indication: ANGIOPLASTY
     Dosage: 150 MG, QD
  5. CLOPIDOGREL [Suspect]
     Indication: STENT PLACEMENT
     Dosage: 75 MG, QD
     Route: 048
  6. CLOPIDOGREL [Suspect]
     Indication: ACUTE MYOCARDIAL INFARCTION
  7. RIFAMPICIN [Suspect]
     Indication: MYCOBACTERIUM AVIUM COMPLEX INFECTION
     Dosage: 75 MG, UNK
     Route: 042
     Dates: start: 20030501
  8. ETHAMBUTOL HCL [Suspect]
     Indication: MYCOBACTERIUM AVIUM COMPLEX INFECTION
     Dosage: 150 MG, UNK
     Route: 065
     Dates: start: 20030501
  9. ETHAMBUTOL HCL [Suspect]
     Dosage: 75 UNK, UNK
  10. ASPIRIN [Concomitant]
     Indication: ANGIOPLASTY
     Dosage: 75 MG, QD
     Route: 065
  11. ASPIRIN [Concomitant]
     Indication: STENT PLACEMENT
  12. ASPIRIN [Concomitant]
     Indication: ACUTE MYOCARDIAL INFARCTION
  13. ETHAMBUTOL HCL [Concomitant]
     Indication: THROMBOSIS PROPHYLAXIS
     Dosage: 75 MG, QD
  14. RIFAMPICIN [Concomitant]
     Indication: DRUG USE FOR UNKNOWN INDICATION
     Dosage: 75 MG, QD
     Route: 042
  15. ABCIXIMAB [Concomitant]
     Indication: ANGIOPLASTY
     Route: 042
  16. ABCIXIMAB [Concomitant]
     Indication: STENT PLACEMENT
  17. ABCIXIMAB [Concomitant]
     Indication: ACUTE MYOCARDIAL INFARCTION
  18. CLOPIDOGREL [Concomitant]
     Dosage: 75 MG, QD
     Route: 040

REACTIONS (5)
  - ACUTE MYOCARDIAL INFARCTION [None]
  - DRUG INTERACTION [None]
  - DRUG RESISTANCE [None]
  - THROMBOSIS [None]
  - THROMBOSIS IN DEVICE [None]
